FAERS Safety Report 18324832 (Version 1)
Quarter: 2020Q3

REPORT INFORMATION
  Report Type: Spontaneous
  Country: IT (occurrence: IT)
  Receive Date: 20200929
  Receipt Date: 20200929
  Transmission Date: 20201103
  Serious: Yes (Other)
  Sender: FDA-Public Use
  Company Number: IT-PFIZER INC-2020371868

PATIENT
  Age: 65 Year
  Sex: Female
  Weight: 83 kg

DRUGS (5)
  1. ABRAXANE [Suspect]
     Active Substance: PACLITAXEL
     Indication: PANCREATIC CARCINOMA STAGE IV
     Dosage: 187 MG, CYCLIC
     Route: 042
     Dates: start: 20200427
  2. XANAX [Concomitant]
     Active Substance: ALPRAZOLAM
     Dosage: UNK
  3. GEMCITABINE HYDROCHLORIDE. [Suspect]
     Active Substance: GEMCITABINE HYDROCHLORIDE
     Indication: PANCREATIC CARCINOMA STAGE IV
     Dosage: 1496 MG, CYCLIC
     Route: 042
     Dates: start: 20200427
  4. ENTACT [Concomitant]
     Active Substance: ESCITALOPRAM OXALATE
     Dosage: UNK
  5. METFORMIN [Concomitant]
     Active Substance: METFORMIN HYDROCHLORIDE
     Dosage: UNK

REACTIONS (4)
  - Hypocalcaemia [Recovering/Resolving]
  - Febrile neutropenia [Recovering/Resolving]
  - Hypokalaemia [Recovering/Resolving]
  - Hypoalbuminaemia [Recovering/Resolving]

NARRATIVE: CASE EVENT DATE: 20200616
